FAERS Safety Report 14950811 (Version 1)
Quarter: 2018Q2

REPORT INFORMATION
  Report Type: Spontaneous
  Country: IT (occurrence: IT)
  Receive Date: 20180530
  Receipt Date: 20180530
  Transmission Date: 20180711
  Serious: Yes (Other)
  Sender: FDA-Public Use
  Company Number: IT-RECORDATI RARE DISEASES INC.-IT-R13005-18-00138

PATIENT
  Age: 7 Year
  Sex: Male
  Weight: 25 kg

DRUGS (9)
  1. DECADRON [Concomitant]
     Active Substance: DEXAMETHASONE
     Indication: PROPHYLAXIS
     Route: 042
  2. COSMEGEN [Suspect]
     Active Substance: DACTINOMYCIN
     Indication: EMBRYONAL RHABDOMYOSARCOMA
     Route: 042
     Dates: start: 20171031, end: 20171031
  3. ZOFRAN [Concomitant]
     Active Substance: ONDANSETRON HYDROCHLORIDE
     Indication: PROPHYLAXIS OF NAUSEA AND VOMITING
     Route: 042
  4. NICETILE [Concomitant]
     Active Substance: ACETYLCARNITINE HYDROCHLORIDE
     Indication: PROPHYLAXIS
     Route: 048
  5. HOLOXAN [Suspect]
     Active Substance: IFOSFAMIDE
     Indication: EMBRYONAL RHABDOMYOSARCOMA
     Route: 042
     Dates: start: 20171031, end: 20171101
  6. UROMITEXAN [Concomitant]
     Active Substance: MESNA
     Indication: PROPHYLAXIS
     Route: 065
     Dates: start: 20171031, end: 20171101
  7. VINCRISTINE [Suspect]
     Active Substance: VINCRISTINE
     Indication: EMBRYONAL RHABDOMYOSARCOMA
     Route: 042
     Dates: start: 20171031, end: 20171031
  8. LAEVOSAN [Concomitant]
     Indication: PARENTERAL NUTRITION
     Route: 042
  9. MYCOSTATIN [Concomitant]
     Active Substance: NYSTATIN
     Indication: PROPHYLAXIS
     Route: 048

REACTIONS (1)
  - Cardiac failure [Recovering/Resolving]

NARRATIVE: CASE EVENT DATE: 20171115
